FAERS Safety Report 5702804-1 (Version None)
Quarter: 2008Q2

REPORT INFORMATION
  Report Type: 
  Country: None (occurrence: None)
  Receive Date: 20080411
  Receipt Date: 20080403
  Transmission Date: 20081010
  Serious: Yes (Hospitalization)
  Sender: FDA-Public Use
  Company Number: US-ELI_LILLY_AND_COMPANY-US200804001254

PATIENT
  Sex: Male

DRUGS (5)
  1. HUMALOG [Suspect]
  2. HUMULIN N [Suspect]
  3. HUMULIN R [Suspect]
  4. COUMADIN [Concomitant]
  5. ASPIRIN [Concomitant]

REACTIONS (2)
  - ARRHYTHMIA [None]
  - FEELING ABNORMAL [None]
